FAERS Safety Report 11880307 (Version 1)
Quarter: 2015Q4

REPORT INFORMATION
  Report Type: Spontaneous
  Country: IT (occurrence: IT)
  Receive Date: 20151230
  Receipt Date: 20151230
  Transmission Date: 20160305
  Serious: Yes (Other)
  Sender: FDA-Public Use
  Company Number: IT-BRISTOL-MYERS SQUIBB COMPANY-BMS-2015-089351

PATIENT
  Age: 41 Year
  Sex: Female

DRUGS (5)
  1. ORLISTAT [Interacting]
     Active Substance: ORLISTAT
     Indication: OVERWEIGHT
     Dosage: 180 MG, QD
     Route: 048
     Dates: start: 20150501, end: 20150601
  2. EMTRICITABINE [Concomitant]
     Active Substance: EMTRICITABINE
     Indication: PRODUCT USED FOR UNKNOWN INDICATION
     Route: 065
  3. VIREAD [Concomitant]
     Active Substance: TENOFOVIR DISOPROXIL FUMARATE
     Indication: PRODUCT USED FOR UNKNOWN INDICATION
     Route: 065
  4. RITONAVIR. [Concomitant]
     Active Substance: RITONAVIR
     Indication: PRODUCT USED FOR UNKNOWN INDICATION
     Route: 065
  5. REYATAZ [Suspect]
     Active Substance: ATAZANAVIR SULFATE
     Indication: ACQUIRED IMMUNODEFICIENCY SYNDROME
     Dosage: 1 UNIT, QD
     Route: 065

REACTIONS (2)
  - Drug interaction [Unknown]
  - Viral load increased [Unknown]

NARRATIVE: CASE EVENT DATE: 20150601
